FAERS Safety Report 12781571 (Version 1)
Quarter: 2016Q3

REPORT INFORMATION
  Report Type: Spontaneous
  Country: US (occurrence: US)
  Receive Date: 20160926
  Receipt Date: 20160926
  Transmission Date: 20161109
  Serious: No
  Sender: FDA-Public Use
  Company Number: US-ALLERGAN-1648657

PATIENT
  Sex: Female

DRUGS (2)
  1. PEPCID [Concomitant]
     Active Substance: FAMOTIDINE
     Indication: PRODUCT USED FOR UNKNOWN INDICATION
  2. CARAFATE [Suspect]
     Active Substance: SUCRALFATE
     Indication: GASTROINTESTINAL HAEMORRHAGE
     Dosage: 10 ML, QID (2 TSP QID)
     Route: 048
     Dates: start: 20150920

REACTIONS (4)
  - Abdominal pain upper [Not Recovered/Not Resolved]
  - Abdominal distension [Not Recovered/Not Resolved]
  - Product substitution issue [None]
  - Gastric haemorrhage [None]

NARRATIVE: CASE EVENT DATE: 20150922
